FAERS Safety Report 4651955-1 (Version None)
Quarter: 2005Q2

REPORT INFORMATION
  Report Type: 
  Country: None (occurrence: None)
  Receive Date: 20050502
  Receipt Date: 20050415
  Transmission Date: 20051028
  Serious: Yes (Hospitalization)
  Sender: FDA-Public Use
  Company Number: 2005BI007986

PATIENT
  Age: 41 Year
  Sex: Female
  Weight: 71.6683 kg

DRUGS (2)
  1. AVONEX [Suspect]
     Indication: MULTIPLE SCLEROSIS
     Dosage: 30 UG; QW; IM
     Route: 030
     Dates: start: 19990401, end: 20030101
  2. AVONEX [Suspect]
     Indication: MULTIPLE SCLEROSIS
     Dosage: 30 UG; QW; IM
     Route: 030
     Dates: start: 20030101

REACTIONS (11)
  - ABSCESS LIMB [None]
  - ASTHENIA [None]
  - CELLULITIS [None]
  - CONDITION AGGRAVATED [None]
  - FATIGUE [None]
  - INFLUENZA LIKE ILLNESS [None]
  - MULTIPLE SCLEROSIS [None]
  - PERONEAL NERVE PALSY [None]
  - RESTLESS LEGS SYNDROME [None]
  - URINARY INCONTINENCE [None]
  - URINARY RETENTION [None]
